FAERS Safety Report 26098348 (Version 1)
Quarter: 2025Q4

REPORT INFORMATION
  Report Type: Spontaneous
  Country: CN (occurrence: CN)
  Receive Date: 20251127
  Receipt Date: 20251127
  Transmission Date: 20260117
  Serious: Yes (Hospitalization, Other)
  Sender: ORGANON
  Company Number: CN-BAT-2025BAT001247

PATIENT
  Age: 72 Year
  Sex: Female
  Weight: 76 kg

DRUGS (2)
  1. TOCILIZUMAB-BAVI [Suspect]
     Active Substance: TOCILIZUMAB-BAVI
     Indication: Rheumatoid arthritis
     Dosage: 480.00 MG, ONLY ONCE
     Dates: start: 20251110, end: 20251110
  2. SODIUM CHLORIDE [Concomitant]
     Active Substance: SODIUM CHLORIDE
     Indication: Vehicle solution use
     Dosage: 250.00 ML, ONLY ONCE
     Dates: start: 20251110, end: 20251110

REACTIONS (1)
  - Myelosuppression [Recovering/Resolving]

NARRATIVE: CASE EVENT DATE: 20251113
